FAERS Safety Report 9614102 (Version 2)
Quarter: 2013Q4

REPORT INFORMATION
  Report Type: Spontaneous
  Country: ES (occurrence: ES)
  Receive Date: 20131011
  Receipt Date: 20131016
  Transmission Date: 20140711
  Serious: Yes (Hospitalization)
  Sender: FDA-Public Use
  Company Number: ES-009507513-1310ESP003288

PATIENT
  Age: 24 Year
  Sex: Female

DRUGS (1)
  1. IMPLANON NXT [Suspect]
     Indication: CONTRACEPTION
     Dosage: 1 IMPLANTE , UNK
     Route: 058
     Dates: start: 2011, end: 201309

REACTIONS (2)
  - Abortion spontaneous [Recovered/Resolved]
  - Pregnancy with implant contraceptive [Unknown]
